FAERS Safety Report 21378955 (Version 1)
Quarter: 2022Q3

REPORT INFORMATION
  Report Type: Spontaneous
  Country: DE (occurrence: DE)
  Receive Date: 20220927
  Receipt Date: 20220927
  Transmission Date: 20221027
  Serious: Yes (Hospitalization, Other)
  Sender: FDA-Public Use
  Company Number: DE-ADRED-07660-01

PATIENT
  Age: 35 Year
  Sex: Male

DRUGS (2)
  1. IBUPROFEN [Suspect]
     Active Substance: IBUPROFEN
     Indication: Product used for unknown indication
     Dosage: UNK UNK, AS NECESSARY
     Route: 065
  2. ASPIRIN\CAFFEINE\PHENACETIN [Suspect]
     Active Substance: ASPIRIN\CAFFEINE\PHENACETIN
     Indication: Product used for unknown indication
     Dosage: UNK UNK, AS DIRECTED
     Route: 065

REACTIONS (17)
  - Systemic infection [Unknown]
  - Hyperkalaemia [Unknown]
  - Renal impairment [Unknown]
  - Dyspnoea [Unknown]
  - Diarrhoea [Unknown]
  - Visual impairment [Unknown]
  - General physical health deterioration [Unknown]
  - Nausea [Unknown]
  - Abdominal pain lower [Unknown]
  - Dehydration [Unknown]
  - Hypertension [Unknown]
  - Headache [Unknown]
  - Electrocardiogram abnormal [Unknown]
  - Anaemia [Unknown]
  - Tachypnoea [Unknown]
  - Vomiting [Unknown]
  - Tachycardia [Unknown]
